FAERS Safety Report 6376027-X (Version None)
Quarter: 2009Q3

REPORT INFORMATION
  Report Type: 
  Country: None (occurrence: None)
  Receive Date: 20090924
  Receipt Date: 20090914
  Transmission Date: 20100115
  Serious: Yes (Hospitalization)
  Sender: FDA-Public Use
  Company Number: PHHY2009SE39716

PATIENT
  Sex: Male

DRUGS (4)
  1. VOLTAREN T [Suspect]
     Indication: OSTEOARTHRITIS
     Dosage: THREE UP TO FIVE TABLETS EACH DAY
     Route: 048
  2. VOLTAREN T [Suspect]
     Indication: PAIN
  3. GLUCOSAMINE [Concomitant]
     Dosage: UNK
     Dates: start: 20090701, end: 20090903
  4. CHONDROITIN A [Concomitant]
     Dosage: UNK
     Dates: start: 20090701, end: 20090903

REACTIONS (5)
  - DYSURIA [None]
  - HAEMATURIA [None]
  - HAEMORRHAGE [None]
  - MASS [None]
  - OVERDOSE [None]
